FAERS Safety Report 9149511 (Version 1)
Quarter: 2013Q1

REPORT INFORMATION
  Report Type: Spontaneous
  Country: US (occurrence: US)
  Receive Date: 20130308
  Receipt Date: 20130308
  Transmission Date: 20140127
  Serious: No
  Sender: FDA-Public Use
  Company Number: US-ENDO PHARMACEUTICALS INC.-OPCR20120154

PATIENT
  Sex: Female
  Weight: 63.56 kg

DRUGS (4)
  1. OPANA ER [Suspect]
     Indication: INTERVERTEBRAL DISC PROTRUSION
     Route: 048
     Dates: start: 201203, end: 201203
  2. OPANA ER [Suspect]
     Indication: SCOLIOSIS
  3. OPANA ER [Concomitant]
     Indication: INTERVERTEBRAL DISC PROTRUSION
     Route: 048
  4. OPANA ER [Concomitant]
     Indication: SCOLIOSIS
     Route: 048

REACTIONS (6)
  - Reaction to drug excipients [Unknown]
  - Malaise [Unknown]
  - Vomiting [Unknown]
  - Weight decreased [Unknown]
  - Diarrhoea [Unknown]
  - Nausea [Unknown]
